FAERS Safety Report 9230315 (Version 3)
Quarter: 2015Q1

REPORT INFORMATION
  Report Type: Spontaneous
  Country: US (occurrence: None)
  Receive Date: 20130411
  Receipt Date: 20150211
  Transmission Date: 20150721
  Serious: Yes (Other)
  Sender: FDA-Public Use
  Company Number: 1303-418

PATIENT
  Age: 79 Year
  Sex: Male

DRUGS (2)
  1. EYLEA [Suspect]
     Active Substance: AFLIBERCEPT
     Indication: AGE-RELATED MACULAR DEGENERATION
     Dosage: 2 MG, Q2MON, INTRAOCULAR
     Route: 031
     Dates: start: 20120130, end: 20130430
  2. BETADINE /00080001/ (POVIDONE-IODINE) [Concomitant]

REACTIONS (6)
  - Vitreous floaters [None]
  - Visual impairment [None]
  - Eye irritation [None]
  - Non-infectious endophthalmitis [None]
  - Lacrimation increased [None]
  - Blindness [None]

NARRATIVE: CASE EVENT DATE: 20130319
